FAERS Safety Report 5957380-5 (Version None)
Quarter: 2008Q4

REPORT INFORMATION
  Report Type: 
  Country: None (occurrence: None)
  Receive Date: 20081114
  Receipt Date: 20081030
  Transmission Date: 20090506
  Serious: Yes (Other)
  Sender: FDA-Public Use
  Company Number: 2008S1019611

PATIENT
  Sex: Female

DRUGS (8)
  1. TENORETIC 100 [Suspect]
     Indication: HYPERTENSION
     Dosage: 62.5 MG; ONCE;
     Dates: start: 20080201
  2. CALCICHEW D3 [Concomitant]
  3. CITALOPRAM HYDROBROMIDE [Concomitant]
  4. ACETAMINOPHEN W/ PROPOXYPHENE HCL [Concomitant]
  5. DIAZEPAM [Concomitant]
  6. INDOMETHACIN [Concomitant]
  7. OMEPRAZOLE [Concomitant]
  8. OVESTIN [Concomitant]

REACTIONS (4)
  - BLOOD PRESSURE INCREASED [None]
  - HEADACHE [None]
  - NECK PAIN [None]
  - OEDEMA PERIPHERAL [None]
